FAERS Safety Report 7075552-6 (Version None)
Quarter: 2010Q4

REPORT INFORMATION
  Report Type: 
  Country: None (occurrence: None)
  Receive Date: 20101030
  Receipt Date: 20101007
  Transmission Date: 20110411
  Serious: No
  Sender: FDA-Public Use
  Company Number: US-WYE-H18038610

PATIENT
  Sex: Female

DRUGS (4)
  1. PRISTIQ [Suspect]
     Indication: DEPRESSION
     Route: 048
     Dates: start: 20100831, end: 20100918
  2. PRISTIQ [Suspect]
     Route: 048
     Dates: start: 20100919, end: 20100929
  3. PRISTIQ [Suspect]
     Route: 048
     Dates: start: 20100930
  4. BUSPIRONE HYDROCHLORIDE [Concomitant]

REACTIONS (4)
  - DRUG EFFECT DECREASED [None]
  - OBSESSIVE THOUGHTS [None]
  - SELF ESTEEM DECREASED [None]
  - WEIGHT INCREASED [None]
